FAERS Safety Report 7408044-2 (Version None)
Quarter: 2011Q2

REPORT INFORMATION
  Report Type: 
  Country: None (occurrence: None)
  Receive Date: 20110412
  Receipt Date: 20110405
  Transmission Date: 20111010
  Serious: Yes (Death, Hospitalization, Other)
  Sender: FDA-Public Use
  Company Number: US-SANOFI-AVENTIS-2010SA075321

PATIENT
  Sex: Female

DRUGS (3)
  1. LOVENOX [Suspect]
     Dosage: 40MG/0.4ML
     Route: 058
     Dates: start: 20071206, end: 20071209
  2. HEPARIN [Suspect]
     Route: 065
     Dates: start: 20071209
  3. ANTIBIOTICS [Concomitant]
     Dates: start: 20071205

REACTIONS (22)
  - VOMITING [None]
  - TACHYCARDIA [None]
  - HAEMOGLOBIN DECREASED [None]
  - WHITE CLOT SYNDROME [None]
  - HEPARIN-INDUCED THROMBOCYTOPENIA [None]
  - HYPOTENSION [None]
  - CARDIAC ARREST [None]
  - UNRESPONSIVE TO STIMULI [None]
  - WHITE BLOOD CELL COUNT INCREASED [None]
  - PROCEDURAL COMPLICATION [None]
  - BLOOD BILIRUBIN INCREASED [None]
  - HYPERSENSITIVITY [None]
  - DYSPNOEA [None]
  - ABDOMINAL DISCOMFORT [None]
  - PLATELET COUNT DECREASED [None]
  - LOSS OF CONSCIOUSNESS [None]
  - RENAL FAILURE ACUTE [None]
  - HAEMODYNAMIC INSTABILITY [None]
  - PRODUCT QUALITY ISSUE [None]
  - DEATH [None]
  - UPPER GASTROINTESTINAL HAEMORRHAGE [None]
  - DUODENAL ULCER [None]
